FAERS Safety Report 22149097 (Version 1)
Quarter: 2023Q1

REPORT INFORMATION
  Report Type: Other
  Country: CZ (occurrence: CZ)
  Receive Date: 20230328
  Receipt Date: 20230328
  Transmission Date: 20230418
  Serious: Yes (Other)
  Sender: FDA-Public Use
  Company Number: None

PATIENT
  Sex: Male

DRUGS (7)
  1. MELOXICAM [Suspect]
     Active Substance: MELOXICAM
     Indication: Ankylosing spondylitis
     Dosage: UNKNOWN
     Route: 065
     Dates: start: 2012
  2. IBUPROFEN [Suspect]
     Active Substance: IBUPROFEN
     Indication: Ankylosing spondylitis
     Dosage: UNKNOWN
     Route: 065
     Dates: start: 2012
  3. DICLOFENAC [Suspect]
     Active Substance: DICLOFENAC
     Indication: Ankylosing spondylitis
     Dosage: UNKNOWN
     Route: 065
  4. NIMESULIDE [Suspect]
     Active Substance: NIMESULIDE
     Indication: Ankylosing spondylitis
     Dosage: UNKNOWN
     Route: 065
     Dates: start: 2012
  5. CHOLECALCIFEROL [Concomitant]
     Active Substance: CHOLECALCIFEROL
     Indication: Osteoporosis
     Dosage: UNKNOWN
     Route: 065
  6. ADALIMUMAB [Concomitant]
     Active Substance: ADALIMUMAB
     Indication: Product used for unknown indication
     Dosage: 40 MILLIGRAM; 2 WEEKS
     Route: 065
     Dates: start: 201206
  7. CALCIUM [Concomitant]
     Active Substance: CALCIUM
     Indication: Osteoporosis
     Dosage: UNKNOWN
     Route: 065

REACTIONS (2)
  - Ankylosing spondylitis [Recovered/Resolved]
  - Treatment failure [Recovered/Resolved]
